FAERS Safety Report 10043572 (Version 1)
Quarter: 2014Q1

REPORT INFORMATION
  Report Type: Report from Study
  Country: IR (occurrence: IR)
  Receive Date: 20140328
  Receipt Date: 20140328
  Transmission Date: 20141002
  Serious: Yes (Hospitalization)
  Sender: FDA-Public Use
  Company Number: IR-ROCHE-1373523

PATIENT
  Age: 54 Year
  Sex: Female

DRUGS (2)
  1. RIBAVIRIN [Suspect]
     Indication: CHRONIC HEPATITIS C
     Route: 065
  2. INTERFERON ALFA [Suspect]
     Indication: CHRONIC HEPATITIS C
     Route: 065

REACTIONS (1)
  - Oedema [Recovered/Resolved]
